FAERS Safety Report 25358993 (Version 3)
Quarter: 2025Q3

REPORT INFORMATION
  Report Type: Report from Study
  Country: CN (occurrence: CN)
  Receive Date: 20250526
  Receipt Date: 20250915
  Transmission Date: 20251021
  Serious: Yes (Other)
  Sender: ROCHE
  Company Number: CN-ROCHE-10000290674

PATIENT
  Age: 70 Year
  Sex: Female
  Weight: 49.8 kg

DRUGS (39)
  1. POLATUZUMAB VEDOTIN [Suspect]
     Active Substance: POLATUZUMAB VEDOTIN
     Indication: Diffuse large B-cell lymphoma
     Route: 042
     Dates: start: 20241201, end: 20241201
  2. POLATUZUMAB VEDOTIN [Suspect]
     Active Substance: POLATUZUMAB VEDOTIN
     Route: 042
     Dates: start: 20250123, end: 20250123
  3. RITUXIMAB [Suspect]
     Active Substance: RITUXIMAB
     Indication: Diffuse large B-cell lymphoma
     Route: 042
     Dates: start: 20241130, end: 20241130
  4. RITUXIMAB [Suspect]
     Active Substance: RITUXIMAB
     Route: 042
     Dates: start: 20250122, end: 20250122
  5. LENALIDOMIDE [Suspect]
     Active Substance: LENALIDOMIDE
     Indication: Diffuse large B-cell lymphoma
     Route: 048
     Dates: start: 20241201, end: 20241210
  6. LENALIDOMIDE [Suspect]
     Active Substance: LENALIDOMIDE
     Route: 048
     Dates: start: 20250122, end: 20250124
  7. ZANUBRUTINIB [Suspect]
     Active Substance: ZANUBRUTINIB
     Indication: Diffuse large B-cell lymphoma
     Route: 048
     Dates: start: 20241201, end: 20241227
  8. ZANUBRUTINIB [Suspect]
     Active Substance: ZANUBRUTINIB
     Route: 048
     Dates: start: 20250121, end: 20250124
  9. Cefaclor extended-release tablets [Concomitant]
     Route: 048
     Dates: start: 20241202
  10. SULFAMETHOXAZOLE [Concomitant]
     Active Substance: SULFAMETHOXAZOLE
     Dosage: DRUG DOSE FIRST ADMINISTERED IS 1 TABLET
     Route: 048
     Dates: start: 20241202
  11. PHOSPHOLIPID [Concomitant]
     Active Substance: PHOSPHOLIPID
     Route: 048
     Dates: start: 20241202
  12. HERBALS\DIAMMONIUM GLYCYRRHIZINATE [Concomitant]
     Active Substance: HERBALS\DIAMMONIUM GLYCYRRHIZINATE
     Route: 048
     Dates: start: 20241202
  13. URSODIOL [Concomitant]
     Active Substance: URSODIOL
     Route: 048
     Dates: start: 20241228, end: 20241229
  14. Potassium chloride sustained-release tablets [Concomitant]
     Route: 048
     Dates: start: 20241227, end: 20241229
  15. PROMETHAZINE [Concomitant]
     Active Substance: PROMETHAZINE HYDROCHLORIDE
     Route: 030
     Dates: start: 20241229, end: 20241229
  16. METHYLPREDNISOLONE SODIUM SUCCINATE [Concomitant]
     Active Substance: METHYLPREDNISOLONE SODIUM SUCCINATE
     Route: 042
     Dates: start: 20241228, end: 20241228
  17. Omeprazole enteric-coated capsules [Concomitant]
     Route: 048
     Dates: start: 20241228, end: 20250107
  18. LEUCOGEN [Concomitant]
     Active Substance: LEUCOGEN
     Route: 048
     Dates: start: 20241202
  19. Ricodrine [Concomitant]
     Indication: Leukocytosis
     Route: 048
     Dates: start: 20241202
  20. Ricodrine [Concomitant]
     Indication: Neutrophil count
  21. Bicyclic alcohol tablets [Concomitant]
     Route: 048
     Dates: start: 20241228
  22. Adenosine butyldisulfonate for injection [Concomitant]
     Route: 042
     Dates: start: 20241227, end: 20241229
  23. Reduced Glutathione for Injection [Concomitant]
  24. Cetirizine Dihydrochloride Tablets [Concomitant]
  25. Ornithine Aspartate Injection [Concomitant]
  26. CEFTRIAXONE SODIUM [Concomitant]
     Active Substance: CEFTRIAXONE SODIUM
  27. Magnesium Isoglycyrrhizinate Injection [Concomitant]
  28. Famotidine for Injection [Concomitant]
  29. Esomeprazole Magnesium Enteric-coated Capsules [Concomitant]
  30. Bumetanide for Injection [Concomitant]
  31. FUROSEMIDE [Concomitant]
     Active Substance: FUROSEMIDE
  32. SPIRONOLACTONE [Concomitant]
     Active Substance: SPIRONOLACTONE
  33. Recombinant Human Thrombopoietin Injection [Concomitant]
  34. Calcitriol Soft Capsules [Concomitant]
  35. VANCOMYCIN HYDROCHLORIDE [Concomitant]
     Active Substance: VANCOMYCIN HYDROCHLORIDE
  36. POSACONAZOLE [Concomitant]
     Active Substance: POSACONAZOLE
  37. Compound Polymyxin B Ointment [Concomitant]
  38. Human Granulocyte Colony-stimulating Factor Injection [Concomitant]
  39. Trimetazidine Dihydrochloride Modified Release Tablets [Concomitant]

REACTIONS (5)
  - Toxic epidermal necrolysis [Not Recovered/Not Resolved]
  - Electrolyte imbalance [Recovering/Resolving]
  - Coagulopathy [Recovering/Resolving]
  - Pneumonia [Recovering/Resolving]
  - Febrile infection [Recovering/Resolving]

NARRATIVE: CASE EVENT DATE: 20250124
